FAERS Safety Report 6343799-X (Version None)
Quarter: 2009Q3

REPORT INFORMATION
  Report Type: 
  Country: None (occurrence: None)
  Receive Date: 20090908
  Receipt Date: 20090902
  Transmission Date: 20100115
  Serious: Yes (Death, Hospitalization, Other)
  Sender: FDA-Public Use
  Company Number: B0591837A

PATIENT
  Sex: Female
  Weight: 69 kg

DRUGS (16)
  1. AUGMENTIN '125' [Suspect]
     Indication: CHOLANGITIS
     Route: 042
     Dates: start: 20080922
  2. BLINDED TRIAL MEDICATION [Suspect]
     Indication: CORONARY ARTERY DISEASE
     Route: 048
     Dates: start: 20080826
  3. COVERSYL [Concomitant]
  4. EZETROL [Concomitant]
  5. FLIXOTIDE [Concomitant]
  6. PROMOCARD [Concomitant]
  7. SELOKEEN [Concomitant]
  8. ASCAL [Concomitant]
  9. METFORMIN HCL [Concomitant]
  10. MIRTAZAPINE [Concomitant]
  11. ORAMORPH SR [Concomitant]
  12. NEXIUM [Concomitant]
  13. GLICLAZIDE [Concomitant]
  14. LIPITOR [Concomitant]
  15. ATROVENT [Concomitant]
  16. SALBUTAMOL [Concomitant]

REACTIONS (8)
  - ABDOMINAL PAIN [None]
  - ANAPHYLACTIC REACTION [None]
  - BILE DUCT OBSTRUCTION [None]
  - CHOLANGITIS [None]
  - ERYTHEMA [None]
  - PANCREATIC CARCINOMA [None]
  - PYREXIA [None]
  - SWELLING [None]
